FAERS Safety Report 6249480-X (Version None)
Quarter: 2009Q2

REPORT INFORMATION
  Report Type: 
  Country: None (occurrence: None)
  Receive Date: 20090629
  Receipt Date: 20090622
  Transmission Date: 20091009
  Serious: Yes (Death)
  Sender: FDA-Public Use
  Company Number: B0478673A

PATIENT
  Age: 8 Month
  Sex: Female
  Weight: 4.4 kg

DRUGS (18)
  1. ZIDOVUDINE [Suspect]
     Indication: HIV INFECTION
     Dosage: 75MG TWICE PER DAY
     Route: 048
     Dates: start: 20060602
  2. LAMIVUDINE [Suspect]
     Indication: HIV INFECTION
     Dosage: 25MG TWICE PER DAY
     Route: 048
     Dates: start: 20060602
  3. KALETRA [Suspect]
     Indication: HIV INFECTION
     Dosage: 1.2ML TWICE PER DAY
     Route: 048
     Dates: start: 20060602
  4. PREVNAR [Suspect]
     Dosage: .5ML SINGLE DOSE
     Dates: start: 20060728, end: 20060728
  5. CO-TRIMOXAZOLE [Concomitant]
  6. PREVNAR [Concomitant]
     Dosage: .5ML SINGLE DOSE
     Dates: start: 20060602, end: 20060602
  7. PREVNAR [Concomitant]
     Dosage: .5ML SINGLE DOSE
     Dates: start: 20060630, end: 20060630
  8. POLIO VACCINE [Concomitant]
     Dates: start: 20060325, end: 20060325
  9. BCG [Concomitant]
     Dates: start: 20060326, end: 20060326
  10. POLIO VACCINE [Concomitant]
     Dates: start: 20060508, end: 20060508
  11. HIBVAX [Concomitant]
     Dates: start: 20060508, end: 20060508
  12. HEP B VACCINE [Concomitant]
     Dates: start: 20060508, end: 20060508
  13. POLIO VACCINE [Concomitant]
     Dates: start: 20060630, end: 20060630
  14. DTP + HIB [Concomitant]
     Dates: start: 20060630, end: 20060630
  15. HEP B VACCINE [Concomitant]
     Dates: start: 20060630, end: 20060630
  16. POLIO VACCINE [Concomitant]
     Dates: start: 20060728, end: 20060728
  17. DTP + HIB [Concomitant]
     Dates: start: 20060728, end: 20060728
  18. HEP B VACCINE [Concomitant]
     Dates: start: 20060728, end: 20060728

REACTIONS (2)
  - COUGH [None]
  - DEATH [None]
